FAERS Safety Report 19176175 (Version 1)
Quarter: 2021Q2

REPORT INFORMATION
  Report Type: Spontaneous
  Country: US (occurrence: US)
  Receive Date: 20210423
  Receipt Date: 20210423
  Transmission Date: 20210717
  Serious: No
  Sender: FDA-Public Use
  Company Number: 2020SGN04251

PATIENT
  Sex: Female

DRUGS (4)
  1. TUKYSA [Suspect]
     Active Substance: TUCATINIB
     Dosage: UNK
     Route: 048
  2. XELODA [Concomitant]
     Active Substance: CAPECITABINE
     Dosage: 1000 MG TWICE A DAY X 14 DAYS, 7 DAYS OFF
  3. TUKYSA [Suspect]
     Active Substance: TUCATINIB
     Indication: BREAST CANCER FEMALE
     Dosage: 300 MG TWICE A DAY
     Route: 048
     Dates: start: 20200909
  4. HERCEPTIN [Concomitant]
     Active Substance: TRASTUZUMAB
     Dosage: UNK UNK, Q3WEEKS

REACTIONS (15)
  - Abdominal pain upper [Unknown]
  - Memory impairment [Unknown]
  - Diarrhoea [Unknown]
  - Unevaluable event [Unknown]
  - Pulmonary arterial pressure increased [Unknown]
  - Tumour marker increased [Unknown]
  - Disease progression [Unknown]
  - Blood potassium decreased [Unknown]
  - Blood bilirubin increased [Not Recovered/Not Resolved]
  - Platelet count decreased [Unknown]
  - Abdominal distension [Unknown]
  - White blood cell count decreased [Unknown]
  - Aspiration pleural cavity [Unknown]
  - Decreased appetite [Unknown]
  - Product dose omission issue [Unknown]
